FAERS Safety Report 11569684 (Version 1)
Quarter: 2015Q3

REPORT INFORMATION
  Report Type: Spontaneous
  Country: US (occurrence: None)
  Receive Date: 20150928
  Receipt Date: 20150928
  Transmission Date: 20151125
  Serious: Yes (Life-Threatening, Hospitalization, Disabling, Other)
  Sender: FDA-Public Use
  Company Number: None

PATIENT
  Age: 68 Year
  Sex: Female
  Weight: 78.93 kg

DRUGS (5)
  1. OXYGEN. [Concomitant]
     Active Substance: OXYGEN
  2. ABUTERAL [Concomitant]
  3. CALCIUM [Concomitant]
     Active Substance: CALCIUM
  4. SYMBICORT [Suspect]
     Active Substance: BUDESONIDE\FORMOTEROL FUMARATE DIHYDRATE
     Indication: CHRONIC OBSTRUCTIVE PULMONARY DISEASE
     Dosage: PUFF
     Route: 055
  5. VITAMIN D [Concomitant]
     Active Substance: CHOLECALCIFEROL

REACTIONS (7)
  - Urinary incontinence [None]
  - Oxygen saturation decreased [None]
  - Renal disorder [None]
  - Blood pressure inadequately controlled [None]
  - Cough [None]
  - Incorrect dose administered [None]
  - Dyspnoea [None]

NARRATIVE: CASE EVENT DATE: 20140924
